FAERS Safety Report 15093101 (Version 1)
Quarter: 2018Q2

REPORT INFORMATION
  Report Type: Spontaneous
  Country: LK (occurrence: LK)
  Receive Date: 20180629
  Receipt Date: 20180629
  Transmission Date: 20180711
  Serious: Yes (Hospitalization)
  Sender: FDA-Public Use
  Company Number: LK-TORRENT-00000016

PATIENT
  Age: 9 Year
  Sex: Male

DRUGS (2)
  1. RISPERIDONE. [Suspect]
     Active Substance: RISPERIDONE
     Indication: HYPOMANIA
     Dosage: INITIAL DOSE
  2. SODIUM VALPROATE [Concomitant]
     Active Substance: VALPROATE SODIUM
     Indication: BIPOLAR DISORDER
     Dosage: INCREASED UP TO 200MG TWICE DAILY

REACTIONS (3)
  - Extrapyramidal disorder [Unknown]
  - Irritability [Recovering/Resolving]
  - Aggression [Recovering/Resolving]
